FAERS Safety Report 7198506-8 (Version None)
Quarter: 2010Q4

REPORT INFORMATION
  Report Type: 
  Country: None (occurrence: None)
  Receive Date: 20101213
  Receipt Date: 20101203
  Transmission Date: 20110411
  Serious: Yes (Other)
  Sender: FDA-Public Use
  Company Number: DSA_44491_2010

PATIENT
  Sex: Female

DRUGS (4)
  1. WELLBUTRIN XL [Suspect]
     Indication: DEPRESSION
     Dosage: 300 MG QD, EACH MORNING
     Dates: start: 20101020
  2. RISPERIDONE [Concomitant]
  3. AMITRIPTYLINE [Concomitant]
  4. VERAPAMIL [Concomitant]

REACTIONS (4)
  - CONDITION AGGRAVATED [None]
  - NAUSEA [None]
  - NEOPLASM [None]
  - VOMITING [None]
